FAERS Safety Report 7754585-8 (Version None)
Quarter: 2011Q3

REPORT INFORMATION
  Report Type: 
  Country: None (occurrence: None)
  Receive Date: 20110915
  Receipt Date: 20110907
  Transmission Date: 20111222
  Serious: Yes (Death, Hospitalization)
  Sender: FDA-Public Use
  Company Number: US-MILLENNIUM PHARMACEUTICALS, INC.-2011-04089

PATIENT
  Age: 43 Year
  Sex: Male
  Weight: 72.5 kg

DRUGS (55)
  1. VELCADE [Suspect]
     Indication: MULTIPLE MYELOMA
     Dosage: UNK
     Dates: start: 20100701
  2. VELCADE [Suspect]
     Dosage: UNK
     Dates: start: 20100925
  3. CISPLATIN [Suspect]
     Dosage: UNK
     Dates: start: 20100701
  4. ADRIAMYCIN PFS [Suspect]
     Dosage: UNK
     Dates: start: 20100925
  5. LEVAQUIN [Concomitant]
     Indication: PRODUCT USED FOR UNKNOWN INDICATION
     Dosage: 500 MG, QD
     Route: 048
  6. LACTULOSE [Concomitant]
     Indication: PRODUCT USED FOR UNKNOWN INDICATION
     Dosage: UNK
     Route: 048
  7. MORPHINE SULFATE [Concomitant]
     Dosage: 5 MG, PRN
     Route: 048
  8. CUBICIN [Concomitant]
     Dosage: 670 MG, QD
     Dates: start: 20101127, end: 20101210
  9. MAGNESIUM [Concomitant]
     Indication: PRODUCT USED FOR UNKNOWN INDICATION
  10. TAMIFLU [Concomitant]
     Indication: PRODUCT USED FOR UNKNOWN INDICATION
  11. THALIDOMIDE [Suspect]
     Indication: MULTIPLE MYELOMA
     Dosage: UNK
     Dates: start: 20100701
  12. DEXAMETHASONE [Suspect]
     Dosage: UNK
     Dates: start: 20100925
  13. SIROLIMUS [Suspect]
     Indication: MULTIPLE MYELOMA
     Dosage: UNK
     Dates: start: 20100701
  14. SIROLIMUS [Suspect]
     Dosage: UNK
     Dates: start: 20100925
  15. DEMEROL [Concomitant]
     Indication: PRODUCT USED FOR UNKNOWN INDICATION
  16. SYNTHROID [Concomitant]
     Indication: PRODUCT USED FOR UNKNOWN INDICATION
     Dosage: 50 MG, QD
     Route: 048
  17. TESTOSTERONE CYPIONATE [Concomitant]
     Indication: PRODUCT USED FOR UNKNOWN INDICATION
     Dosage: 200 MG, QD
     Route: 030
  18. DAPTOMYCIN [Concomitant]
     Indication: PRODUCT USED FOR UNKNOWN INDICATION
     Dosage: 9 MG/KG, QD
     Dates: start: 20101125
  19. CEFEPIME HYDROCHLORIDE [Concomitant]
     Indication: PRODUCT USED FOR UNKNOWN INDICATION
     Dosage: 2000 G, Q8HR
     Route: 042
     Dates: start: 20101121, end: 20101218
  20. CUBICIN [Concomitant]
     Indication: PRODUCT USED FOR UNKNOWN INDICATION
     Dosage: 670 MG, QD
     Dates: start: 20101124, end: 20101225
  21. METRO                              /00012501/ [Concomitant]
     Indication: PRODUCT USED FOR UNKNOWN INDICATION
     Dosage: 500 MG, Q8HR
     Route: 042
     Dates: start: 20101127, end: 20101210
  22. ZOLOFT                             /01011402/ [Concomitant]
     Indication: PRODUCT USED FOR UNKNOWN INDICATION
     Route: 048
  23. DEXAMETHASONE [Suspect]
     Indication: MULTIPLE MYELOMA
     Dosage: UNK
     Dates: start: 20100701
  24. FLAGYL [Concomitant]
     Indication: PRODUCT USED FOR UNKNOWN INDICATION
     Dosage: 500 MG, Q8HR
     Route: 042
  25. OXYCONTIN [Concomitant]
     Indication: PRODUCT USED FOR UNKNOWN INDICATION
     Dosage: 20 MG, Q8HR
     Route: 048
  26. MARINOL [Concomitant]
     Indication: PRODUCT USED FOR UNKNOWN INDICATION
     Dosage: 5 MG, BID
     Route: 048
  27. ACTIQ [Concomitant]
     Indication: PAIN
     Dosage: 200 UG, PRN
  28. CYCLOPHOSPHAMIDE [Suspect]
     Indication: MULTIPLE MYELOMA
     Dosage: UNK
     Dates: start: 20100701
  29. ACYCLOVIR [Concomitant]
     Indication: PRODUCT USED FOR UNKNOWN INDICATION
     Dosage: 400 MG, BID
     Route: 048
  30. KYTRIL [Concomitant]
     Indication: NAUSEA
     Dosage: 1 MG, PRN
     Route: 048
     Dates: start: 20100821, end: 20100831
  31. MYCAMINE [Concomitant]
     Dosage: 100 MG, QD
     Route: 042
     Dates: start: 20101124, end: 20101218
  32. VELCADE [Suspect]
     Dosage: 2.39 MG, UNK
     Dates: start: 20101208
  33. CC-4047 [Suspect]
     Indication: MULTIPLE MYELOMA
     Dosage: 4 MG, UNK
     Route: 048
     Dates: start: 20100714
  34. CC-4047 [Suspect]
     Dosage: 4 UNK, UNK
     Route: 048
     Dates: start: 20101211
  35. MULTI-VITAMINS [Concomitant]
     Indication: PRODUCT USED FOR UNKNOWN INDICATION
     Dosage: UNK
     Route: 048
  36. NEXIUM [Concomitant]
     Indication: PRODUCT USED FOR UNKNOWN INDICATION
     Dosage: 40 MG, PRN
     Route: 048
  37. MYCAMINE [Concomitant]
     Indication: PRODUCT USED FOR UNKNOWN INDICATION
     Dosage: 100 MG, QD
     Route: 042
     Dates: start: 20101104, end: 20101130
  38. BACLOFEN [Concomitant]
     Indication: MUSCLE SPASMS
  39. THALIDOMIDE [Suspect]
     Dosage: UNK
     Dates: start: 20100925
  40. CISPLATIN [Suspect]
     Indication: MULTIPLE MYELOMA
     Dosage: 20 MG, UNK
     Dates: start: 20100824
  41. ETOPOSIDE [Suspect]
     Indication: MULTIPLE MYELOMA
     Dosage: UNK
     Dates: start: 20100701
  42. ETOPOSIDE [Suspect]
     Dosage: 60 MG, UNK
     Dates: start: 20100824
  43. AMBIEN CR [Concomitant]
     Indication: INSOMNIA
     Dosage: 12.5 MG, QD
     Route: 048
  44. OXYCODONE HCL [Concomitant]
     Indication: PAIN
     Dosage: 10 MG, PRN
     Route: 048
  45. DEPO-TESTOSTERONE [Concomitant]
     Indication: PRODUCT USED FOR UNKNOWN INDICATION
     Dosage: 200 UNK, UNK
     Route: 030
  46. ALPRAZOLAM [Concomitant]
     Indication: ANXIETY
     Dosage: 0.25 MG, PRN
  47. LYRICA [Concomitant]
     Indication: PRODUCT USED FOR UNKNOWN INDICATION
     Dosage: UNK
     Route: 048
     Dates: end: 20101001
  48. MORPHINE SULFATE [Concomitant]
     Indication: PRODUCT USED FOR UNKNOWN INDICATION
     Dosage: 10 MG, PRN
     Route: 048
  49. DEXAMETHASONE [Suspect]
     Dosage: 12 MG, UNK
     Route: 042
     Dates: start: 20101208
  50. ADRIAMYCIN PFS [Suspect]
     Indication: MULTIPLE MYELOMA
     Dosage: UNK
     Dates: start: 20100701
  51. MESNA [Suspect]
     Indication: MULTIPLE MYELOMA
     Dosage: UNK
     Dates: start: 20100701
  52. HYDROCORTISONE [Concomitant]
     Indication: PRODUCT USED FOR UNKNOWN INDICATION
     Dosage: 100 MG, UNK
     Dates: start: 20100824
  53. NORTRIPTYLINE HCL [Concomitant]
     Indication: PRODUCT USED FOR UNKNOWN INDICATION
     Dosage: UNK
     Route: 048
  54. SODIUM CHLORIDE [Concomitant]
     Indication: PRODUCT USED FOR UNKNOWN INDICATION
     Dosage: 0.9 %, QD
     Route: 042
     Dates: start: 20101125, end: 20101130
  55. GABAPENTIN [Concomitant]
     Indication: NEUROPATHY PERIPHERAL
     Dosage: 300 MG, BID
     Route: 048

REACTIONS (7)
  - PULMONARY HAEMORRHAGE [None]
  - MULTIPLE MYELOMA [None]
  - PAIN [None]
  - ORTHOSTATIC HYPOTENSION [None]
  - NAUSEA [None]
  - PYREXIA [None]
  - THROMBOCYTOPENIA [None]
